FAERS Safety Report 22350836 (Version 1)
Quarter: 2023Q2

REPORT INFORMATION
  Report Type: Spontaneous
  Country: KR (occurrence: KR)
  Receive Date: 20230522
  Receipt Date: 20230522
  Transmission Date: 20230721
  Serious: No
  Sender: FDA-Public Use
  Company Number: KR-PFIZER INC-202300193392

PATIENT
  Age: 70 Year
  Sex: Female

DRUGS (1)
  1. PAXLOVID [Suspect]
     Active Substance: NIRMATRELVIR\RITONAVIR
     Indication: COVID-19 treatment
     Dosage: EVERY 12 HOURS (OCCASIONALLY)
     Route: 048

REACTIONS (2)
  - Dysgeusia [Unknown]
  - Inappropriate schedule of product administration [Unknown]
